FAERS Safety Report 4879080-5 (Version None)
Quarter: 2006Q1

REPORT INFORMATION
  Report Type: 
  Country: None (occurrence: None)
  Receive Date: 20060112
  Receipt Date: 20060103
  Transmission Date: 20060701
  Serious: Yes (Other)
  Sender: FDA-Public Use
  Company Number: 2006GB00010

PATIENT
  Age: 65 Year
  Sex: Female
  Weight: 70 kg

DRUGS (2)
  1. ANASTROZOLE [Suspect]
     Indication: BREAST CANCER
     Route: 048
     Dates: start: 20051111, end: 20051120
  2. TAMOXIFEN CITRATE [Concomitant]
     Indication: BREAST CANCER
     Route: 048
     Dates: start: 20000101, end: 20050101

REACTIONS (1)
  - VERTIGO [None]
